FAERS Safety Report 9674430 (Version 1)
Quarter: 2013Q4

REPORT INFORMATION
  Report Type: Spontaneous
  Country: US (occurrence: US)
  Receive Date: 20131107
  Receipt Date: 20131107
  Transmission Date: 20140711
  Serious: No
  Sender: FDA-Public Use
  Company Number: US-BIOGENIDEC-2013BI106373

PATIENT
  Age: 46 Year
  Sex: Female

DRUGS (10)
  1. AVONEX [Suspect]
     Indication: MULTIPLE SCLEROSIS
     Route: 030
     Dates: start: 20130228
  2. AMITRIPTYLINE HCL [Concomitant]
  3. ASPIRIN CHILDRENS [Concomitant]
  4. B12-ACTIVE [Concomitant]
  5. BACLOFEN [Concomitant]
  6. CHANTIX [Concomitant]
  7. FOLIC ACID [Concomitant]
  8. FOSAMAX [Concomitant]
  9. GRALISE [Concomitant]
  10. KLONOPIN [Concomitant]

REACTIONS (1)
  - Pneumonia [Unknown]
